FAERS Safety Report 20009443 (Version 1)
Quarter: 2021Q4

REPORT INFORMATION
  Report Type: Spontaneous
  Country: FR (occurrence: FR)
  Receive Date: 20211028
  Receipt Date: 20211028
  Transmission Date: 20220303
  Serious: Yes (Hospitalization)
  Sender: FDA-Public Use
  Company Number: None

PATIENT
  Age: 25 Year
  Sex: Male

DRUGS (7)
  1. MORPHINE SULFATE [Suspect]
     Active Substance: MORPHINE SULFATE
     Indication: Product used for unknown indication
     Dosage: UNK [NON RENSEIGNEE]
     Route: 048
  2. ALCOHOL [Suspect]
     Active Substance: ALCOHOL
     Indication: Product used for unknown indication
     Dosage: UNK [NON RENSEIGNEE]
     Route: 048
     Dates: start: 2002
  3. TOBACCO LEAF [Suspect]
     Active Substance: TOBACCO LEAF
     Indication: Product used for unknown indication
     Dosage: UNK [NON RENSEIGNEE]
     Route: 055
  4. MIDOMAFETAMINE [Suspect]
     Active Substance: MIDOMAFETAMINE
     Indication: Product used for unknown indication
     Dosage: UNK [NON RENSEIGNEE]
     Route: 065
     Dates: start: 2002
  5. CANNABIS SATIVA SUBSP. INDICA TOP [Suspect]
     Active Substance: CANNABIS SATIVA SUBSP. INDICA TOP
     Indication: Product used for unknown indication
     Dosage: UNK [NON RENSEIGNEE]
     Route: 055
     Dates: start: 2002
  6. COCAINE [Suspect]
     Active Substance: COCAINE
     Indication: Product used for unknown indication
     Dosage: UNK [EN TRACE LE WEEK-END]
     Route: 045
     Dates: start: 2002
  7. COCAINE [Suspect]
     Active Substance: COCAINE
     Dosage: UNK [1 FOIS/MOIS]
     Route: 055
     Dates: start: 2002

REACTIONS (5)
  - Poisoning [Recovered/Resolved]
  - Suicidal ideation [Not Recovered/Not Resolved]
  - Bundle branch block right [Recovering/Resolving]
  - Tachycardia [Recovered/Resolved]
  - Drug abuse [Not Recovered/Not Resolved]

NARRATIVE: CASE EVENT DATE: 20200915
